FAERS Safety Report 15985137 (Version 2)
Quarter: 2019Q1

REPORT INFORMATION
  Report Type: Spontaneous
  Country: JP (occurrence: JP)
  Receive Date: 20190220
  Receipt Date: 20190304
  Transmission Date: 20190418
  Serious: Yes (Hospitalization)
  Sender: FDA-Public Use
  Company Number: JP-JT-EVA201900481KERYXP-001

PATIENT
  Age: 51 Year
  Sex: Female
  Weight: 109 kg

DRUGS (22)
  1. RIONA [Suspect]
     Active Substance: FERRIC CITRATE ANHYDROUS
     Indication: HYPERPHOSPHATAEMIA
     Dosage: 500 MILLIGRAM, Q8H
     Route: 048
     Dates: start: 20171004
  2. JTZ-951 [Concomitant]
     Active Substance: ENARODUSTAT
     Dosage: 4 MILLIGRAM, QD
     Route: 048
     Dates: start: 20180419
  3. JUVELA N [Concomitant]
     Active Substance: TOCOPHERYL NICOTINATE, D-.ALPHA.
     Indication: DYSLIPIDAEMIA
     Dosage: 100 MILLIGRAM, Q8H
     Route: 048
     Dates: start: 20141103
  4. VOGLIBOSE [Concomitant]
     Active Substance: VOGLIBOSE
     Indication: TYPE 2 DIABETES MELLITUS
     Dosage: 0.3 MILLIGRAM, Q8H
     Route: 048
     Dates: start: 20170111
  5. FEBURIC [Concomitant]
     Active Substance: FEBUXOSTAT
     Indication: HYPERURICAEMIA
     Dosage: 20 MILLIGRAM, QD
     Route: 048
     Dates: start: 20121012
  6. TRULICITY [Concomitant]
     Active Substance: DULAGLUTIDE
     Indication: TYPE 2 DIABETES MELLITUS
     Dosage: 0.75 MILLIGRAM, QWK
     Route: 058
     Dates: start: 20160907
  7. LASIX [Concomitant]
     Active Substance: FUROSEMIDE
     Indication: HYPERTENSION
     Dosage: 40 MILLIGRAM, Q8H
     Route: 048
     Dates: start: 20151125
  8. ALLEGRA [Concomitant]
     Active Substance: FEXOFENADINE HYDROCHLORIDE
     Indication: PRURITUS
     Dosage: 60 MILLIGRAM, Q12H
     Route: 048
     Dates: start: 20150107
  9. LANTUS [Concomitant]
     Active Substance: INSULIN GLARGINE
     Dosage: 28 INTERNATIONAL UNIT, QD
     Route: 058
     Dates: start: 20190209
  10. LANTUS [Concomitant]
     Active Substance: INSULIN GLARGINE
     Dosage: 24 INTERNATIONAL UNIT, QD
     Route: 058
     Dates: start: 20190210, end: 20190212
  11. PROPETO [Concomitant]
     Indication: PRURITUS
     Dosage: UNK, QD
     Route: 003
     Dates: start: 20171116
  12. FOSRENOL [Concomitant]
     Active Substance: LANTHANUM CARBONATE
     Indication: HYPERPHOSPHATAEMIA
     Dosage: 500 MILLIGRAM, Q8H
     Route: 048
     Dates: start: 20170909
  13. REGPARA [Concomitant]
     Active Substance: CINACALCET HYDROCHLORIDE
     Indication: HYPERPARATHYROIDISM SECONDARY
     Dosage: 50 MILLIGRAM, QD
     Route: 048
     Dates: start: 20180418
  14. SUREPOST [Concomitant]
     Active Substance: REPAGLINIDE
     Indication: TYPE 2 DIABETES MELLITUS
     Dosage: 0.5 MILLIGRAM, Q8H
     Route: 048
     Dates: start: 20180905
  15. JTZ-951 [Concomitant]
     Active Substance: ENARODUSTAT
     Indication: NEPHROGENIC ANAEMIA
     Dosage: 2 MILLIGRAM, QD
     Route: 048
     Dates: start: 20180221, end: 20180418
  16. BAYCARON [Concomitant]
     Active Substance: MEFRUSIDE
     Indication: HYPERTENSION
     Dosage: 25 MILLIGRAM, QD
     Route: 048
     Dates: start: 20151111
  17. CRESTOR [Concomitant]
     Active Substance: ROSUVASTATIN CALCIUM
     Indication: DYSLIPIDAEMIA
     Dosage: 2.5 MILLIGRAM, QD
     Route: 048
     Dates: start: 20100318
  18. LANTUS [Concomitant]
     Active Substance: INSULIN GLARGINE
     Dosage: 36 INTERNATIONAL UNIT, QD
     Route: 058
     Dates: start: 20190208
  19. OLMETEC [Concomitant]
     Active Substance: OLMESARTAN MEDOXOMIL
     Indication: HYPERTENSION
     Dosage: 10 MILLIGRAM, QD
     Route: 048
     Dates: start: 20170621
  20. PHOSBLOCK [Concomitant]
     Active Substance: FERRIC HYDROXIDE
     Indication: HYPERPHOSPHATAEMIA
     Dosage: 500 MILLIGRAM, Q8H
     Route: 048
     Dates: start: 20160803
  21. LANTUS [Concomitant]
     Active Substance: INSULIN GLARGINE
     Indication: TYPE 2 DIABETES MELLITUS
     Dosage: 20 INTERNATIONAL UNIT, Q12H
     Route: 058
     Dates: start: 20171227
  22. ALFAROL [Concomitant]
     Active Substance: ALFACALCIDOL
     Indication: CHRONIC KIDNEY DISEASE
     Dosage: 0.25 MICROGRAM, Q12H
     Route: 048
     Dates: start: 20180221

REACTIONS (1)
  - Cardiac failure chronic [Recovered/Resolved]

NARRATIVE: CASE EVENT DATE: 20190206
